FAERS Safety Report 10067185 (Version 1)
Quarter: 2014Q2

REPORT INFORMATION
  Report Type: Spontaneous
  Country: PT (occurrence: None)
  Receive Date: 20140407
  Receipt Date: 20140407
  Transmission Date: 20141212
  Serious: Yes (Hospitalization, Other)
  Sender: FDA-Public Use
  Company Number: NSR_01534_2014

PATIENT
  Age: 85 Year
  Sex: Female

DRUGS (3)
  1. ALLOPURINOL [Suspect]
     Indication: PRODUCT USED FOR UNKNOWN INDICATION
     Dosage: (DF) (6 WEEKS UNTIL NOT CONTINUING)
  2. NITROFURANTOIN [Suspect]
     Indication: PRODUCT USED FOR UNKNOWN INDICATION
     Dosage: (DF) (6 WEEKS UNTIL NOT CONTINUING
  3. FENOFIBRATE [Suspect]
     Dosage: DF, FOR SIX WEEKS, UNTIL NOT CONTINUING.

REACTIONS (4)
  - Renal failure acute [None]
  - Drug reaction with eosinophilia and systemic symptoms [None]
  - Dyspnoea [None]
  - Respiratory disorder [None]
